FAERS Safety Report 4693857-0 (Version None)
Quarter: 2005Q2

REPORT INFORMATION
  Report Type: 
  Country: None (occurrence: None)
  Receive Date: 20050615
  Receipt Date: 20050602
  Transmission Date: 20051028
  Serious: Yes (Other)
  Sender: FDA-Public Use
  Company Number: 2005085566

PATIENT
  Age: 60 Year
  Sex: Male
  Weight: 127.0072 kg

DRUGS (17)
  1. BEXTRA [Suspect]
     Indication: ARTHROPATHY
     Dosage: 1 D, ORAL
     Route: 048
     Dates: start: 20040301
  2. BEXTRA [Suspect]
     Indication: GOUTY ARTHRITIS
     Dosage: 1 D, ORAL
     Route: 048
     Dates: start: 20040301
  3. NORVASC [Concomitant]
  4. SPIRONOLACTONE [Concomitant]
  5. FUROSEMIDE [Concomitant]
  6. MICARDIS [Concomitant]
  7. HEMOCYTE PUS (FERROUS FUMARATE, FOLIC ACID, MINERALS NOS, SODIUM ASCOR [Concomitant]
  8. CARDURA [Concomitant]
  9. LIPITOR [Concomitant]
  10. ALLOPURINOL [Concomitant]
  11. COLCHICINE (COLCHICINE) [Concomitant]
  12. ASPIRIN [Concomitant]
  13. K-DUR 10 [Concomitant]
  14. NIASPAN [Concomitant]
  15. GLUCOPHAGE [Concomitant]
  16. AVANDIA [Concomitant]
  17. PRANDIN [Concomitant]

REACTIONS (13)
  - CATARACT DIABETIC [None]
  - DRUG INEFFECTIVE [None]
  - DRY SKIN [None]
  - ERYTHEMA [None]
  - KNEE OPERATION [None]
  - PAIN [None]
  - PRURITUS [None]
  - PSORIASIS [None]
  - RASH SCALY [None]
  - SKIN EXFOLIATION [None]
  - SKIN REACTION [None]
  - VISUAL ACUITY REDUCED [None]
  - WEIGHT DECREASED [None]
